FAERS Safety Report 13005801 (Version 2)
Quarter: 2017Q1

REPORT INFORMATION
  Report Type: Spontaneous
  Country: US (occurrence: US)
  Receive Date: 20161207
  Receipt Date: 20170104
  Transmission Date: 20170428
  Serious: Yes (Hospitalization, Other)
  Sender: FDA-Public Use
  Company Number: US-PFIZER INC-2016563226

PATIENT
  Age: 52 Year
  Sex: Female
  Weight: 79 kg

DRUGS (1)
  1. REVATIO [Suspect]
     Active Substance: SILDENAFIL CITRATE
     Indication: PULMONARY HYPERTENSION
     Dosage: 80 MG, 3X/DAY
     Route: 048
     Dates: start: 2005

REACTIONS (4)
  - Pneumonia [Unknown]
  - Product use issue [Unknown]
  - Cardiac failure congestive [Unknown]
  - Malaise [Unknown]

NARRATIVE: CASE EVENT DATE: 2005
